FAERS Safety Report 8835171 (Version 1)
Quarter: 2012Q4

REPORT INFORMATION
  Report Type: Report from Study
  Country: CA (occurrence: CA)
  Receive Date: 20121011
  Receipt Date: 20121011
  Transmission Date: 20130627
  Serious: No
  Sender: FDA-Public Use
  Company Number: CA-JNJFOC-20120912474

PATIENT
  Sex: Female
  Weight: 59 kg

DRUGS (8)
  1. REMICADE [Suspect]
     Indication: CROHN^S DISEASE
     Route: 042
     Dates: start: 20080516
  2. IMURAN [Concomitant]
     Route: 065
  3. PANTOLOC [Concomitant]
     Route: 065
  4. CHOLESTYRAMINE [Concomitant]
     Route: 065
  5. VALTREX [Concomitant]
     Route: 065
  6. ATACAND [Concomitant]
     Route: 065
  7. INDAPAMIDE [Concomitant]
     Route: 065
  8. BUSCOPAN [Concomitant]
     Route: 065

REACTIONS (1)
  - Fungal infection [Recovered/Resolved]
